FAERS Safety Report 4660169-0 (Version None)
Quarter: 2005Q2

REPORT INFORMATION
  Report Type: 
  Country: None (occurrence: None)
  Receive Date: 20050512
  Receipt Date: 20021010
  Transmission Date: 20051028
  Serious: Yes (Hospitalization)
  Sender: FDA-Public Use
  Company Number: PHBS2002CO16145

PATIENT
  Age: 71 Year
  Sex: Female

DRUGS (1)
  1. ZELMAC [Suspect]
     Indication: IRRITABLE BOWEL SYNDROME
     Dosage: 6 MG
     Route: 048
     Dates: start: 20021001

REACTIONS (3)
  - ASTHENIA [None]
  - DIARRHOEA [None]
  - INTESTINAL OBSTRUCTION [None]
